FAERS Safety Report 23320028 (Version 2)
Quarter: 2023Q4

REPORT INFORMATION
  Report Type: Spontaneous
  Country: US (occurrence: US)
  Receive Date: 20231220
  Receipt Date: 20231221
  Transmission Date: 20240109
  Serious: Yes (Other)
  Sender: FDA-Public Use
  Company Number: US-JNJFOC-20231234587

PATIENT
  Sex: Male

DRUGS (1)
  1. PEPCID AC MAXIMUM STRENGTH [Suspect]
     Active Substance: FAMOTIDINE
     Indication: Product used for unknown indication
     Dosage: FEW TIMES WEEKLY, EVERY OTHER DAY OR SO
     Route: 065

REACTIONS (6)
  - Drug dependence [Not Recovered/Not Resolved]
  - Withdrawal syndrome [Unknown]
  - Dyspepsia [Unknown]
  - Insomnia [Unknown]
  - Pain in extremity [Unknown]
  - Abdominal pain [Unknown]
